FAERS Safety Report 18811810 (Version 1)
Quarter: 2021Q1

REPORT INFORMATION
  Report Type: Spontaneous
  Country: US (occurrence: US)
  Receive Date: 20210129
  Receipt Date: 20210129
  Transmission Date: 20210419
  Serious: Yes (Other)
  Sender: FDA-Public Use
  Company Number: US-RIGEL PHARMACEUTICALS, INC.-2020FOS000685

PATIENT
  Age: 77 Year
  Sex: Female

DRUGS (6)
  1. TAVALISSE [Suspect]
     Active Substance: FOSTAMATINIB
     Dosage: 100 MG, BID
     Dates: start: 20201019, end: 20201118
  2. NPLATE [Suspect]
     Active Substance: ROMIPLOSTIM
     Indication: PRODUCT USED FOR UNKNOWN INDICATION
     Dosage: 515 MICROGRAM
  3. TAVALISSE [Suspect]
     Active Substance: FOSTAMATINIB
     Indication: IMMUNE THROMBOCYTOPENIA
     Dosage: 150 MG, BID
     Route: 048
     Dates: start: 20201118
  4. NPLATE [Suspect]
     Active Substance: ROMIPLOSTIM
     Dosage: 394 MICROGRAM
     Dates: start: 202101, end: 202101
  5. OLMESARTAN [Concomitant]
     Active Substance: OLMESARTAN
     Indication: PRODUCT USED FOR UNKNOWN INDICATION
     Dosage: 15 MG, QD
     Route: 048
  6. NPLATE [Suspect]
     Active Substance: ROMIPLOSTIM
     Dosage: UNK
     Dates: start: 2020, end: 2020

REACTIONS (6)
  - Asthenia [Recovered/Resolved]
  - Memory impairment [Recovered/Resolved]
  - Platelet count increased [Unknown]
  - Vision blurred [Recovered/Resolved]
  - Vision blurred [Recovered/Resolved]
  - Accidental overdose [Unknown]

NARRATIVE: CASE EVENT DATE: 2020
